FAERS Safety Report 13160061 (Version 3)
Quarter: 2017Q1

REPORT INFORMATION
  Report Type: Spontaneous
  Country: NL (occurrence: NL)
  Receive Date: 20170127
  Receipt Date: 20170215
  Transmission Date: 20170428
  Serious: Yes (Death, Hospitalization, Other)
  Sender: FDA-Public Use
  Company Number: NL-GILEAD-2017-0254750

PATIENT
  Age: 67 Year
  Sex: Female
  Weight: 85 kg

DRUGS (2)
  1. ZYDELIG [Suspect]
     Active Substance: IDELALISIB
     Indication: CHRONIC LYMPHOCYTIC LEUKAEMIA
     Dosage: 150 MG, UNK
     Route: 048
     Dates: start: 20161219, end: 20170102
  2. COTRIM [Concomitant]
     Active Substance: SULFAMETHOXAZOLE\TRIMETHOPRIM
     Indication: ANTIFUNGAL PROPHYLAXIS
     Dosage: UNK
     Dates: start: 20161219, end: 20170102

REACTIONS (10)
  - Adenovirus infection [Fatal]
  - Gastroenteritis norovirus [Fatal]
  - Respiratory tract infection [Fatal]
  - Multiple organ dysfunction syndrome [Fatal]
  - Appendicitis [Unknown]
  - Rhinovirus infection [Fatal]
  - Abdominal infection [Unknown]
  - Metapneumovirus infection [Fatal]
  - Viral infection [Fatal]
  - Inflammation [Unknown]

NARRATIVE: CASE EVENT DATE: 20170102
